FAERS Safety Report 26045534 (Version 1)
Quarter: 2025Q4

REPORT INFORMATION
  Report Type: Report from Study
  Country: CA (occurrence: CA)
  Receive Date: 20251114
  Receipt Date: 20251114
  Transmission Date: 20260117
  Serious: Yes (Hospitalization)
  Sender: ABBVIE
  Company Number: CA-ABBVIE-6543345

PATIENT
  Sex: Female

DRUGS (9)
  1. RINVOQ [Suspect]
     Active Substance: UPADACITINIB
     Indication: Rheumatoid arthritis
     Dosage: FORM STRENGTH 15 MG
     Route: 048
  2. CALCIUM CITRATE [Concomitant]
     Active Substance: CALCIUM CITRATE
     Indication: Product used for unknown indication
     Dosage: 300 MG TABLET, 300 MG, ORAL, DAILY WITH SUPPER
     Route: 048
  3. LEVOTHYROXINE [Concomitant]
     Active Substance: LEVOTHYROXINE
     Indication: Product used for unknown indication
     Dosage: 88 MCG TABLET, 88 MCG, ORAL, DAILY
     Route: 048
  4. PANTOPRAZOLE MAGNESIUM [Concomitant]
     Active Substance: PANTOPRAZOLE MAGNESIUM
     Indication: Product used for unknown indication
     Dosage: 40 MG TABLET ENTERIC-COATED, 40 MG, ORAL, DAILY 30 MIN BEFORE BREAKFAST
  5. VITAMIN A [Concomitant]
     Active Substance: VITAMIN A
     Indication: Product used for unknown indication
  6. vitamin D3, cholecalciferol [Concomitant]
     Indication: Product used for unknown indication
     Dosage: 1,000 UNITS TABLET, 1,000 UNITS, ORAL, DAILY
     Route: 048
  7. VITAMIN E [Concomitant]
     Active Substance: .ALPHA.-TOCOPHEROL
     Indication: Product used for unknown indication
     Dosage: 200 UNIT CAPSULE, 200 UNITS, ORAL, DAILY
  8. ACETAMINOPHEN [Concomitant]
     Active Substance: ACETAMINOPHEN
     Indication: Product used for unknown indication
     Dosage: 500 MG TABLET, 1,000 MG, PRN
     Route: 048
  9. calcium carbonate- vitamin D3 [Concomitant]
     Indication: Product used for unknown indication
     Dosage: 600 MG-800 UNIT (20 MCG) TABLET, CHEWABLE, 1 TABLET,

REACTIONS (7)
  - Interstitial lung disease [Unknown]
  - Respiratory failure [Unknown]
  - Asthenia [Unknown]
  - Infection [Unknown]
  - Arthralgia [Unknown]
  - Secretion discharge [Unknown]
  - Pneumonia [Unknown]
